FAERS Safety Report 8462388 (Version 3)
Quarter: 2012Q4

REPORT INFORMATION
  Report Type: 
  Country: US (occurrence: US)
  Receive Date: 20120316
  Receipt Date: 20120829
  Transmission Date: 20130627
  Serious: No
  Sender: FDA-Public Use
  Company Number: US-PFIZER INC-2012065917

PATIENT
  Age: 65 Year
  Sex: Male
  Weight: 88.44 kg

DRUGS (3)
  1. FLECTOR [Suspect]
     Indication: BACK PAIN
     Dosage: UNK, every twelve hours
     Route: 061
     Dates: start: 20120307, end: 20120308
  2. FLECTOR [Suspect]
     Dosage: UNK, every twelve hours
     Route: 061
     Dates: start: 20120312
  3. JANUMET [Concomitant]
     Indication: DIABETES MELLITUS
     Dosage: metformin hydrochloride 500 mg/sitagliptin 50 mg, 2x/day
     Route: 048

REACTIONS (2)
  - Product adhesion issue [Unknown]
  - Malabsorption [Unknown]
